FAERS Safety Report 9791239 (Version 2)
Quarter: 2014Q1

REPORT INFORMATION
  Report Type: Report from Study
  Country: US (occurrence: US)
  Receive Date: 20140101
  Receipt Date: 20140101
  Transmission Date: 20141002
  Serious: Yes (Life-Threatening, Hospitalization, Other)
  Sender: FDA-Public Use
  Company Number: US-ROCHE-1263380

PATIENT
  Age: 61 Year
  Sex: 0

DRUGS (5)
  1. BEVACIZUMAB [Suspect]
     Indication: NON-SMALL CELL LUNG CANCER
     Route: 042
     Dates: start: 20130529
  2. CIXUTUMUMAB [Suspect]
     Indication: NON-SMALL CELL LUNG CANCER
     Dosage: LAST DOSE PRIOR TO SAE: 18/JUN/2013
     Route: 042
     Dates: start: 20130529
  3. PACLITAXEL [Suspect]
     Indication: NON-SMALL CELL LUNG CANCER
     Route: 042
     Dates: start: 20130529
  4. CARBOPLATIN [Suspect]
     Indication: NON-SMALL CELL LUNG CANCER
     Dosage: DOSE: AUC 6
     Route: 042
     Dates: start: 20130529
  5. ZOMETA [Concomitant]

REACTIONS (15)
  - Febrile neutropenia [Unknown]
  - Neutrophil count decreased [Unknown]
  - Platelet count decreased [Unknown]
  - Anaemia [Unknown]
  - Hyponatraemia [Unknown]
  - Mucosal infection [Unknown]
  - Sepsis [Unknown]
  - Hyperkalaemia [Unknown]
  - Lung infection [Unknown]
  - Nausea [Unknown]
  - Vomiting [Unknown]
  - Hyperglycaemia [Unknown]
  - Encephalopathy [Unknown]
  - Renal failure chronic [Unknown]
  - White blood cell count decreased [Unknown]
